FAERS Safety Report 7524549-8 (Version None)
Quarter: 2011Q2

REPORT INFORMATION
  Report Type: 
  Country: None (occurrence: None)
  Receive Date: 20110606
  Receipt Date: 20110125
  Transmission Date: 20111010
  Serious: Yes (Other)
  Sender: FDA-Public Use
  Company Number: US-BAYER-201033402NA

PATIENT
  Age: 20 Year
  Sex: Female
  Weight: 58.957 kg

DRUGS (13)
  1. LEVAQUIN [Concomitant]
     Dosage: 500 MG, CONT
  2. YASMIN [Suspect]
     Dosage: UNK
     Dates: start: 20060501, end: 20070201
  3. PHENERGAN HCL [Concomitant]
     Indication: VOMITING
  4. ALIMENTARY TRACT AND METABOLISM [Concomitant]
  5. LIDOCAINE HCL VISCOUS [Concomitant]
  6. YAZ [Suspect]
     Indication: ACNE
     Dosage: UNK
     Dates: start: 20090801, end: 20091001
  7. VICODIN [Concomitant]
     Indication: PAIN
     Dosage: 5 MG, PRN
  8. YASMIN [Suspect]
     Dosage: UNK
     Dates: start: 20071101, end: 20080101
  9. YASMIN [Suspect]
     Dosage: UNK
     Dates: start: 20081001, end: 20090101
  10. PERCOCET [Concomitant]
  11. PHENERGAN HCL [Concomitant]
     Indication: NAUSEA
     Dosage: 12.5 MG, PRN
  12. DONNATAL [Concomitant]
  13. YASMIN [Suspect]
     Indication: ACNE
     Dosage: UNK
     Route: 048
     Dates: start: 20021222, end: 20030201

REACTIONS (6)
  - CHOLECYSTITIS CHRONIC [None]
  - BILIARY COLIC [None]
  - MENTAL DISORDER [None]
  - ABDOMINAL PAIN [None]
  - CHOLELITHIASIS [None]
  - VOMITING [None]
